FAERS Safety Report 10255972 (Version 1)
Quarter: 2014Q2

REPORT INFORMATION
  Report Type: Spontaneous
  Country: FR (occurrence: FR)
  Receive Date: 20140624
  Receipt Date: 20140624
  Transmission Date: 20141212
  Serious: Yes (Hospitalization, Other)
  Sender: FDA-Public Use
  Company Number: FR-PFIZER INC-2014169516

PATIENT
  Age: 86 Year
  Sex: Female

DRUGS (8)
  1. EFFEXOR [Suspect]
     Dosage: 37.5 MG, 1X/DAY
     Route: 048
  2. NEBIVOLOL [Suspect]
     Dosage: 1 DF, 1X/DAY
     Route: 048
  3. HYDROCORTISONE [Concomitant]
     Dosage: UNK
  4. TAHOR [Concomitant]
     Dosage: UNK
  5. GLICLAZIDE [Concomitant]
     Dosage: UNK
  6. PRADAXA [Concomitant]
     Dosage: UNK
  7. FLECAINE [Concomitant]
     Dosage: UNK
  8. LEVOTHYROX [Concomitant]
     Dosage: UNK

REACTIONS (5)
  - Fall [Recovered/Resolved]
  - Hypotension [Recovered/Resolved]
  - Prerenal failure [Unknown]
  - Hypoglycaemia [Unknown]
  - Orthostatic hypotension [Unknown]
